FAERS Safety Report 6391646 (Version 3)
Quarter: 2016Q2

REPORT INFORMATION
  Report Type: Spontaneous
  Country: FR (occurrence: FR)
  Receive Date: 20070827
  Receipt Date: 20160525
  Transmission Date: 20160815
  Serious: Yes (Hospitalization, Other)
  Sender: FDA-Public Use
  Company Number: FR-ASTRAZENECA-2007CG01196

PATIENT
  Age: 15076 Day
  Sex: Female

DRUGS (13)
  1. BACTRIM [Concomitant]
     Active Substance: SULFAMETHOXAZOLE\TRIMETHOPRIM
     Indication: ANTIFUNGAL PROPHYLAXIS
     Dates: start: 20060726, end: 20060806
  2. MICROPAKINE [Concomitant]
     Active Substance: VALPROIC ACID
     Indication: MULTIPLE DRUG THERAPY
     Route: 048
     Dates: start: 20060703, end: 20060723
  3. DOLIPRANE [Concomitant]
     Active Substance: ACETAMINOPHEN
     Indication: MULTIPLE DRUG THERAPY
     Route: 048
     Dates: start: 20060703, end: 20060723
  4. TEMODAL [Concomitant]
     Active Substance: TEMOZOLOMIDE
     Dates: start: 2006
  5. KEPPRA [Concomitant]
     Active Substance: LEVETIRACETAM
     Dates: start: 20060727, end: 20060806
  6. RADIOTHERAPY [Concomitant]
     Active Substance: RADIATION THERAPY
     Dates: start: 20060725, end: 20060806
  7. TEMODAL [Concomitant]
     Active Substance: TEMOZOLOMIDE
     Dates: start: 20060725, end: 20060806
  8. IMOVANE [Concomitant]
     Active Substance: ZOPICLONE
     Indication: MULTIPLE DRUG THERAPY
     Route: 048
     Dates: start: 20060703, end: 20060723
  9. RADIOTHERAPY [Concomitant]
     Active Substance: RADIATION THERAPY
     Dates: start: 20061010
  10. BACTRIM [Concomitant]
     Active Substance: SULFAMETHOXAZOLE\TRIMETHOPRIM
     Indication: MULTIPLE DRUG THERAPY
     Dates: start: 20060726, end: 20060806
  11. INEXIUM [Suspect]
     Active Substance: ESOMEPRAZOLE
     Indication: MULTIPLE DRUG THERAPY
     Route: 048
     Dates: start: 20060703, end: 20060905
  12. FRAXIPARINE [Concomitant]
     Active Substance: NADROPARIN CALCIUM
     Dates: start: 20060703
  13. URBANYL [Concomitant]
     Active Substance: CLOBAZAM
     Indication: MULTIPLE DRUG THERAPY
     Route: 048
     Dates: start: 20060703, end: 20060905

REACTIONS (1)
  - Drug reaction with eosinophilia and systemic symptoms [Unknown]

NARRATIVE: CASE EVENT DATE: 20060723
